FAERS Safety Report 6384503-9 (Version None)
Quarter: 2009Q3

REPORT INFORMATION
  Report Type: 
  Country: None (occurrence: None)
  Receive Date: 20090925
  Receipt Date: 20090203
  Transmission Date: 20100115
  Serious: Yes (Congenital Anomaly)
  Sender: FDA-Public Use
  Company Number: 434091

PATIENT
  Age: 7 Year
  Sex: Female

DRUGS (1)
  1. NIX [Suspect]
     Dates: start: 20090202

REACTIONS (1)
  - CONJUNCTIVITIS [None]
